FAERS Safety Report 14961659 (Version 1)
Quarter: 2018Q2

REPORT INFORMATION
  Report Type: Spontaneous
  Country: US (occurrence: US)
  Receive Date: 20180601
  Receipt Date: 20180601
  Transmission Date: 20180711
  Serious: Yes (Other)
  Sender: FDA-Public Use
  Company Number: US-AUROBINDO-AUR-APL-2017-45628

PATIENT
  Age: 59 Year
  Sex: Male

DRUGS (14)
  1. PRAMIPEXOLE. [Suspect]
     Active Substance: PRAMIPEXOLE
     Dosage: ()
  2. CLOZAPINE. [Suspect]
     Active Substance: CLOZAPINE
     Dosage: 25 MILLIGRAM, ONCE A DAY
     Route: 065
  3. QUETIAPINE. [Suspect]
     Active Substance: QUETIAPINE
     Indication: PRODUCT USED FOR UNKNOWN INDICATION
     Dosage: UNK
     Route: 065
  4. LEVODOPA/CARBIDOPA [Suspect]
     Active Substance: CARBIDOPA\LEVODOPA
     Indication: PARKINSON^S DISEASE
     Dosage: 300 MILLIGRAM, ONCE A DAY
     Route: 065
  5. ENTACAPONE TABLETS [Suspect]
     Active Substance: ENTACAPONE
     Dosage: 800 MILLIGRAM, ONCE A DAY
     Route: 065
  6. SERTRALINE [Suspect]
     Active Substance: SERTRALINE HYDROCHLORIDE
     Indication: PRODUCT USED FOR UNKNOWN INDICATION
     Dosage: UNK
     Route: 065
  7. ENTACAPONE TABLETS [Suspect]
     Active Substance: ENTACAPONE
     Indication: PARKINSON^S DISEASE
     Dosage: UNK
     Route: 065
  8. CLOZAPINE. [Suspect]
     Active Substance: CLOZAPINE
     Dosage: 37.5 MILLIGRAM, ONCE A DAY
     Route: 065
  9. TRIHEXYPHENIDYL [Suspect]
     Active Substance: TRIHEXYPHENIDYL
     Dosage: 1 MILLIGRAM, ONCE A DAY
     Route: 065
  10. PRAMIPEXOLE. [Suspect]
     Active Substance: PRAMIPEXOLE
     Indication: PARKINSON^S DISEASE
     Dosage: UNK
     Route: 065
  11. CLOZAPINE. [Suspect]
     Active Substance: CLOZAPINE
     Indication: PARKINSON^S DISEASE
     Dosage: 6.25 MILLIGRAM, ONCE A DAY
     Route: 065
  12. LEVODOPA/CARBIDOPA [Suspect]
     Active Substance: CARBIDOPA\LEVODOPA
     Dosage: 750 MILLIGRAM, ONCE A DAY
     Route: 065
  13. ROPINIROLE. [Suspect]
     Active Substance: ROPINIROLE
     Indication: PARKINSON^S DISEASE
     Dosage: UNK
     Route: 065
  14. TRIHEXYPHENIDYL [Suspect]
     Active Substance: TRIHEXYPHENIDYL
     Indication: PARKINSON^S DISEASE
     Dosage: UNK
     Route: 065

REACTIONS (13)
  - Compulsive sexual behaviour [Unknown]
  - Hallucinations, mixed [Unknown]
  - Psychotic disorder [Recovering/Resolving]
  - Motor dysfunction [Unknown]
  - Drug ineffective [Unknown]
  - Sleep attacks [Unknown]
  - Erectile dysfunction [Unknown]
  - Impulse-control disorder [Recovering/Resolving]
  - Paranoia [Unknown]
  - Hypersexuality [Recovering/Resolving]
  - Obsessive thoughts [Recovering/Resolving]
  - Drug dependence [Unknown]
  - Off label use [Unknown]
